FAERS Safety Report 6037272-6 (Version None)
Quarter: 2009Q1

REPORT INFORMATION
  Report Type: 
  Country: None (occurrence: None)
  Receive Date: 20090114
  Receipt Date: 20090113
  Transmission Date: 20090719
  Serious: Yes (Other)
  Sender: FDA-Public Use
  Company Number: B0527150A

PATIENT
  Age: 65 Year
  Sex: Female

DRUGS (8)
  1. SERETIDE [Suspect]
     Indication: ASTHMA
     Dosage: 2PUFF TWICE PER DAY
     Route: 055
     Dates: start: 20040101
  2. AMLODIPINE [Suspect]
     Indication: BLOOD PRESSURE
     Dosage: 5MG PER DAY
     Route: 048
  3. VENTOLIN [Suspect]
     Indication: ASTHMA
     Dosage: 100MCG AS REQUIRED
     Route: 055
  4. SINGULAIR [Suspect]
     Indication: ASTHMA
     Dosage: 10MG PER DAY
     Route: 048
  5. OMEPRAZOLE [Suspect]
     Dosage: 20MG PER DAY
     Route: 048
  6. UNKNOWN [Concomitant]
  7. TRIAMCINOLONE NASAL SPRAY [Concomitant]
  8. DIHYDROCODEINE BITARTRATE INJ [Concomitant]
     Dosage: 30MG AS REQUIRED

REACTIONS (4)
  - ASTHMA [None]
  - COUGH [None]
  - DYSPNOEA [None]
  - INCREASED UPPER AIRWAY SECRETION [None]
